FAERS Safety Report 4793534-1 (Version None)
Quarter: 2005Q4

REPORT INFORMATION
  Report Type: 
  Country: None (occurrence: None)
  Receive Date: 20051005
  Receipt Date: 20050919
  Transmission Date: 20060501
  Serious: Yes (Death)
  Sender: FDA-Public Use
  Company Number: AND_0088_2005

PATIENT
  Age: 81 Year

DRUGS (3)
  1. ACETAMINOPHEN W/ PROPOXYPHENE HCL [Suspect]
     Dosage: DF
  2. DILTIAZEM [Suspect]
     Dosage: DF
  3. DIGOXIN [Suspect]
     Dosage: DF

REACTIONS (3)
  - COMPLETED SUICIDE [None]
  - INTENTIONAL DRUG MISUSE [None]
  - OVERDOSE [None]
